FAERS Safety Report 4675871-4 (Version None)
Quarter: 2005Q2

REPORT INFORMATION
  Report Type: 
  Country: None (occurrence: None)
  Receive Date: 20050527
  Receipt Date: 20050512
  Transmission Date: 20051028
  Serious: Yes (Other)
  Sender: FDA-Public Use
  Company Number: HQWYE690912MAY05

PATIENT
  Age: 32 Year
  Sex: Female

DRUGS (9)
  1. ENBREL [Suspect]
     Indication: DRUG USE FOR UNKNOWN INDICATION
     Dosage: INTERMITTENT 50 MG UP TO TWICE PER WEEK
     Route: 058
     Dates: start: 19990101
  2. REMICADE [Suspect]
     Route: 042
     Dates: start: 20010101, end: 20010101
  3. HYDROCORTISONE [Concomitant]
     Route: 065
     Dates: start: 20010101
  4. DIPHENHYDRAMINE HCL [Concomitant]
     Route: 065
     Dates: start: 20010101
  5. ACETAMINOPHEN [Concomitant]
     Route: 065
     Dates: start: 20010101
  6. PREDNISONE [Concomitant]
     Dates: start: 20010101, end: 20010101
  7. ZANTAC [Concomitant]
  8. FLAGYL [Concomitant]
  9. CIPROFLOXACIN [Concomitant]

REACTIONS (15)
  - ALOPECIA [None]
  - ARTHRALGIA [None]
  - ASTHENIA [None]
  - CUTANEOUS VASCULITIS [None]
  - ENDOMETRIOSIS [None]
  - FATTY ACID DEFICIENCY [None]
  - FLUSHING [None]
  - INFLAMMATION [None]
  - MALABSORPTION [None]
  - MALAISE [None]
  - NIGHT SWEATS [None]
  - OVARIAN FAILURE [None]
  - SKIN BURNING SENSATION [None]
  - STRIDOR [None]
  - VAGINAL HAEMORRHAGE [None]
